FAERS Safety Report 7748849-1 (Version None)
Quarter: 2011Q3

REPORT INFORMATION
  Report Type: 
  Country: None (occurrence: None)
  Receive Date: 20110913
  Receipt Date: 20110913
  Transmission Date: 20111222
  Serious: Yes (Hospitalization)
  Sender: FDA-Public Use
  Company Number: None

PATIENT
  Age: 55 Year
  Sex: Male
  Weight: 92.7 kg

DRUGS (2)
  1. VANCOMYCIN [Suspect]
     Dosage: 1500 MG BID IV
     Route: 042
     Dates: start: 20110603, end: 20110609
  2. PIPERACILLIN AND TAZOBACTAM [Suspect]
     Indication: OSTEOMYELITIS
     Dates: start: 20110603, end: 20110607

REACTIONS (8)
  - TUBULOINTERSTITIAL NEPHRITIS [None]
  - EOSINOPHILIA [None]
  - BONE DISORDER [None]
  - PYREXIA [None]
  - RENAL FAILURE ACUTE [None]
  - SKIN ULCER [None]
  - RASH [None]
  - PAIN [None]
